FAERS Safety Report 7003769-5 (Version None)
Quarter: 2010Q3

REPORT INFORMATION
  Report Type: 
  Country: None (occurrence: None)
  Receive Date: 20100920
  Receipt Date: 20090923
  Transmission Date: 20110219
  Serious: No
  Sender: FDA-Public Use
  Company Number: US-WYE-H11193009

PATIENT
  Sex: Female

DRUGS (4)
  1. PROTONIX [Suspect]
     Indication: GASTROOESOPHAGEAL REFLUX DISEASE
     Route: 048
     Dates: start: 20010101
  2. ATIVAN [Concomitant]
  3. MULTI-VITAMINS [Concomitant]
  4. OSTEO BIFLEX TRIPLE STRENGTH [Concomitant]

REACTIONS (1)
  - COELIAC DISEASE [None]
